FAERS Safety Report 7523319-4 (Version None)
Quarter: 2011Q2

REPORT INFORMATION
  Report Type: 
  Country: None (occurrence: None)
  Receive Date: 20110603
  Receipt Date: 20110525
  Transmission Date: 20111010
  Serious: Yes (Other)
  Sender: FDA-Public Use
  Company Number: A0913423A

PATIENT
  Age: 48 Year
  Sex: Female

DRUGS (8)
  1. SPIRIVA [Concomitant]
  2. ADVAIR DISKUS 100/50 [Suspect]
     Indication: ASTHMA
     Dosage: 1PUFF TWICE PER DAY
     Route: 055
  3. SINGULAIR [Concomitant]
  4. ZYRTEC [Concomitant]
  5. VENTOLIN [Concomitant]
  6. QVAR 40 [Concomitant]
  7. PREDNISONE [Concomitant]
  8. VERAMYST [Concomitant]

REACTIONS (3)
  - PRODUCT QUALITY ISSUE [None]
  - ASTHMA [None]
  - WHEEZING [None]
